FAERS Safety Report 5117833-9 (Version None)
Quarter: 2006Q3

REPORT INFORMATION
  Report Type: 
  Country: None (occurrence: None)
  Receive Date: 20060929
  Receipt Date: 20060919
  Transmission Date: 20061208
  Serious: Yes (Hospitalization)
  Sender: FDA-Public Use
  Company Number: HK-SANOFI-SYNTHELABO-F01200602006

PATIENT
  Sex: Male

DRUGS (7)
  1. ADALAT [Concomitant]
     Indication: HYPERTENSION
     Dosage: 40 MG
     Route: 048
     Dates: start: 20060515
  2. AMITRIPTYLINE HYDROCHLORIDE [Concomitant]
     Indication: HYPOAESTHESIA
     Dosage: 10 MG
     Route: 048
     Dates: start: 20041103
  3. ZOCOR [Concomitant]
     Indication: HYPERLIPIDAEMIA
     Dosage: 10 MG
     Route: 048
  4. ZESTRIL [Concomitant]
     Indication: HYPERTENSION
     Dosage: 10 MG
     Route: 048
     Dates: start: 20050214
  5. MICARDIS [Suspect]
     Route: 048
     Dates: start: 20051007
  6. CLOPIDOGREL [Suspect]
     Indication: CEREBROVASCULAR ACCIDENT
     Route: 048
     Dates: start: 20051017
  7. CLOTRIMAZOLE [Concomitant]
     Indication: FUNGAL SKIN INFECTION
     Route: 065
     Dates: start: 20060907

REACTIONS (2)
  - GASTRITIS EROSIVE [None]
  - OESOPHAGEAL ULCER [None]
